FAERS Safety Report 10776975 (Version 3)
Quarter: 2015Q2

REPORT INFORMATION
  Report Type: Spontaneous
  Country: US (occurrence: US)
  Receive Date: 20150209
  Receipt Date: 20150407
  Transmission Date: 20150821
  Serious: Yes (Other)
  Sender: FDA-Public Use
  Company Number: US-BAYER-2015-018565

PATIENT
  Age: 18 Year
  Sex: Female
  Weight: 68.93 kg

DRUGS (1)
  1. MIRENA [Suspect]
     Active Substance: LEVONORGESTREL
     Indication: CONTRACEPTION
     Dosage: 20 MCG/24HR, CONT
     Route: 015
     Dates: start: 20140709, end: 20150220

REACTIONS (13)
  - Device difficult to use [None]
  - Abdominal pain [None]
  - Procedural pain [Recovered/Resolved]
  - Pain [None]
  - Feeling abnormal [None]
  - Ovarian cyst [None]
  - Menorrhagia [None]
  - Abdominal pain lower [None]
  - Dyspareunia [None]
  - Dysuria [None]
  - Device dislocation [None]
  - Ovarian cyst ruptured [None]
  - Pain [None]

NARRATIVE: CASE EVENT DATE: 2014
